FAERS Safety Report 8247006-2 (Version None)
Quarter: 2012Q1

REPORT INFORMATION
  Report Type: 
  Country: None (occurrence: None)
  Receive Date: 20120330
  Receipt Date: 20120330
  Transmission Date: 20120608
  Serious: No
  Sender: FDA-Public Use
  Company Number: None

PATIENT
  Age: 14 Year
  Sex: Female
  Weight: 54.9 kg

DRUGS (2)
  1. VORICONAZOLE [Concomitant]
  2. VORICONAZOLE [Suspect]
     Dosage: 250MG
     Route: 048
     Dates: start: 20111222, end: 20120326

REACTIONS (1)
  - ALOPECIA [None]
